FAERS Safety Report 23321241 (Version 3)
Quarter: 2024Q1

REPORT INFORMATION
  Report Type: Spontaneous
  Country: CO (occurrence: CO)
  Receive Date: 20231220
  Receipt Date: 20240131
  Transmission Date: 20240410
  Serious: Yes (Other)
  Sender: FDA-Public Use
  Company Number: CO-SA-SAC20231218000281

PATIENT
  Age: 78 Year
  Sex: Male

DRUGS (1)
  1. PRALUENT [Suspect]
     Active Substance: ALIROCUMAB
     Indication: Type IIa hyperlipidaemia
     Dosage: 75 MG, Q15D
     Route: 058
     Dates: start: 20230517

REACTIONS (2)
  - Cardiac pacemaker replacement [Recovering/Resolving]
  - Implantable defibrillator replacement [Unknown]

NARRATIVE: CASE EVENT DATE: 20230918
